FAERS Safety Report 5041381-8 (Version None)
Quarter: 2006Q2

REPORT INFORMATION
  Report Type: 
  Country: None (occurrence: None)
  Receive Date: 20060626
  Receipt Date: 20060616
  Transmission Date: 20061013
  Serious: No
  Sender: FDA-Public Use
  Company Number: TPA2003A01729

PATIENT
  Age: 67 Year
  Sex: Male

DRUGS (18)
  1. ACTOS [Suspect]
     Indication: DIABETES MELLITUS
     Dosage: PER ORAL
     Route: 048
     Dates: start: 20020601, end: 20030501
  2. GLIPIZIDE [Concomitant]
  3. GLUCOPHAGE [Concomitant]
  4. MACROBID [Concomitant]
  5. REMERON [Concomitant]
  6. ZOLOFT [Concomitant]
  7. SERTRALINE [Concomitant]
  8. TRAZODONE HCL [Concomitant]
  9. ACETAMINOPHEN [Concomitant]
  10. METOPROLOL SUCCINATE [Concomitant]
  11. FUROSEMIDE [Concomitant]
  12. LANOXIN [Concomitant]
  13. PRINIVIL [Concomitant]
  14. NTG (GLYCERYL TRINITRATE) [Concomitant]
  15. ATIVAN [Concomitant]
  16. ASPIRIN [Concomitant]
  17. FERROUS SULFATE TAB [Concomitant]
  18. OCULAR PREDNISOLONE (PREDNISOLONE SODIUM PHOSPHATE) [Concomitant]

REACTIONS (9)
  - CONDITION AGGRAVATED [None]
  - DIABETES MELLITUS [None]
  - DIABETIC RETINOPATHY [None]
  - FAT TISSUE INCREASED [None]
  - FLUID RETENTION [None]
  - INTRAOCULAR PRESSURE INCREASED [None]
  - MACULAR OEDEMA [None]
  - RETINAL EXUDATES [None]
  - RETINAL HAEMORRHAGE [None]
